FAERS Safety Report 12242131 (Version 1)
Quarter: 2016Q2

REPORT INFORMATION
  Report Type: Spontaneous
  Country: US (occurrence: US)
  Receive Date: 20160406
  Receipt Date: 20160406
  Transmission Date: 20160815
  Serious: Yes (Other)
  Sender: FDA-Public Use
  Company Number: US-DRREDDYS-DRL/USA/16/0077990

PATIENT
  Age: 29 Year
  Sex: Female

DRUGS (3)
  1. CLINDAMYCIN [Concomitant]
     Active Substance: CLINDAMYCIN\CLINDAMYCIN PHOSPHATE
     Indication: TOOTH ABSCESS
     Route: 048
     Dates: start: 201512
  2. IBUPROFEN. [Suspect]
     Active Substance: IBUPROFEN
     Indication: TOOTHACHE
     Route: 048
     Dates: start: 201512
  3. KEFLEX [Concomitant]
     Active Substance: CEPHALEXIN
     Indication: TOOTH ABSCESS
     Route: 048
     Dates: start: 201512

REACTIONS (2)
  - Urinary tract infection [Recovered/Resolved]
  - False positive investigation result [Unknown]

NARRATIVE: CASE EVENT DATE: 201502
